FAERS Safety Report 23038941 (Version 1)
Quarter: 2023Q4

REPORT INFORMATION
  Report Type: Spontaneous
  Country: CA (occurrence: CA)
  Receive Date: 20231006
  Receipt Date: 20231006
  Transmission Date: 20240110
  Serious: Yes (Other)
  Sender: FDA-Public Use
  Company Number: CA-SANDOZ-SDZ2023CA038333

PATIENT
  Age: 45 Year
  Sex: Female

DRUGS (2)
  1. ADALIMUMAB [Suspect]
     Active Substance: ADALIMUMAB
     Indication: Ankylosing spondylitis
     Dosage: 40 MG
     Route: 058
  2. METHOTREXATE SODIUM [Suspect]
     Active Substance: METHOTREXATE SODIUM
     Indication: Ankylosing spondylitis
     Dosage: UNK
     Route: 065

REACTIONS (9)
  - Ankylosing spondylitis [Unknown]
  - Pharyngeal swelling [Unknown]
  - Arthralgia [Unknown]
  - Drug ineffective [Unknown]
  - Dysphonia [Unknown]
  - Fatigue [Unknown]
  - Injection site pain [Unknown]
  - Memory impairment [Unknown]
  - Oropharyngeal pain [Unknown]
